FAERS Safety Report 25005371 (Version 2)
Quarter: 2025Q2

REPORT INFORMATION
  Report Type: Spontaneous
  Country: US (occurrence: US)
  Receive Date: 20250224
  Receipt Date: 20250521
  Transmission Date: 20250717
  Serious: No
  Sender: CATALYST PHARMA
  Company Number: US-CATALYST PHARMACEUTICALS-US-CATA-24-01566

PATIENT
  Age: 16 Year
  Sex: Male
  Weight: 36.281 kg

DRUGS (2)
  1. AGAMREE [Suspect]
     Active Substance: VAMOROLONE
     Indication: Duchenne muscular dystrophy
     Dosage: 5.5ML ONCE DAILY WITH DINNER
     Route: 048
     Dates: start: 20241128
  2. LISINOPRIL [Concomitant]
     Active Substance: LISINOPRIL
     Indication: Cardiovascular event prophylaxis
     Dosage: 2.5 MG ONCE A DAY
     Route: 065

REACTIONS (5)
  - Urine output increased [Not Recovered/Not Resolved]
  - Frequent bowel movements [Recovered/Resolved]
  - Sleep disorder [Unknown]
  - Enuresis [Not Recovered/Not Resolved]
  - Abdominal pain upper [Recovered/Resolved]

NARRATIVE: CASE EVENT DATE: 20241129
